FAERS Safety Report 8277676-4 (Version None)
Quarter: 2012Q2

REPORT INFORMATION
  Report Type: 
  Country: None (occurrence: None)
  Receive Date: 20120412
  Receipt Date: 20120328
  Transmission Date: 20120825
  Serious: Yes (Other)
  Sender: FDA-Public Use
  Company Number: US-ENDO PHARMACEUTICALS INC.-OPER20120023

PATIENT
  Sex: Male

DRUGS (2)
  1. OPANA ER [Suspect]
     Indication: DRUG ABUSE
     Route: 048
     Dates: start: 20110701
  2. OPANA [Suspect]
     Indication: DRUG ABUSE
     Route: 048
     Dates: start: 20110701

REACTIONS (2)
  - DRUG ABUSE [None]
  - PRESCRIPTION FORM TAMPERING [None]
